FAERS Safety Report 9153106 (Version 1)
Quarter: 2013Q1

REPORT INFORMATION
  Report Type: Spontaneous
  Country: US (occurrence: US)
  Receive Date: 20130311
  Receipt Date: 20130311
  Transmission Date: 20140127
  Serious: No
  Sender: FDA-Public Use
  Company Number: US-009507513-1302USA010926

PATIENT
  Sex: Female

DRUGS (6)
  1. MEVACOR TABLET [Suspect]
     Indication: BLOOD CHOLESTEROL ABNORMAL
     Route: 048
  2. ZOCOR [Suspect]
     Indication: BLOOD CHOLESTEROL ABNORMAL
     Route: 048
  3. LIPITOR [Concomitant]
     Indication: BLOOD CHOLESTEROL ABNORMAL
  4. CRESTOR [Concomitant]
     Indication: BLOOD CHOLESTEROL ABNORMAL
  5. PRAVACHOL [Concomitant]
     Indication: BLOOD CHOLESTEROL ABNORMAL
  6. RED YEAST [Concomitant]
     Indication: BLOOD CHOLESTEROL ABNORMAL

REACTIONS (6)
  - Herpes zoster [Unknown]
  - Nerve injury [Unknown]
  - Chest pain [Unknown]
  - Blood cholesterol increased [Unknown]
  - Dizziness [Unknown]
  - Malaise [Unknown]
